FAERS Safety Report 16910827 (Version 2)
Quarter: 2020Q1

REPORT INFORMATION
  Report Type: Spontaneous
  Country: US (occurrence: US)
  Receive Date: 20191012
  Receipt Date: 20200127
  Transmission Date: 20200409
  Serious: Yes (Hospitalization, Other)
  Sender: FDA-Public Use
  Company Number: US-009507513-1910USA003745

PATIENT
  Age: 75 Year
  Sex: Female
  Weight: 86.18 kg

DRUGS (3)
  1. ATORVASTATIN [Suspect]
     Active Substance: ATORVASTATIN
     Dosage: 80 MILLIGRAM, HS
     Route: 048
     Dates: start: 20190704, end: 201909
  2. METOPROLOL. [Concomitant]
     Active Substance: METOPROLOL
     Indication: BLOOD PRESSURE ABNORMAL
     Dosage: 25 MILLIGRAM, BID
     Dates: start: 2008
  3. PRINIVIL [Suspect]
     Active Substance: LISINOPRIL
     Indication: BLOOD PRESSURE ABNORMAL
     Dosage: 5 MILLIGRAM, QD
     Route: 048
     Dates: start: 20190704, end: 20190911

REACTIONS (4)
  - Arthralgia [Not Recovered/Not Resolved]
  - Cough [Recovered/Resolved]
  - Sepsis [Recovered/Resolved]
  - Chest pain [Recovered/Resolved]

NARRATIVE: CASE EVENT DATE: 2019
